FAERS Safety Report 5698272-9 (Version None)
Quarter: 2008Q2

REPORT INFORMATION
  Report Type: 
  Country: None (occurrence: None)
  Receive Date: 20080408
  Receipt Date: 20080325
  Transmission Date: 20081010
  Serious: Yes (Life-Threatening)
  Sender: FDA-Public Use
  Company Number: US-BOEHRINGER INGELHEIM GMBH, GERMANY-2008-BP-04715RO

PATIENT
  Sex: Female
  Weight: 72 kg

DRUGS (11)
  1. METHOTREXATE [Suspect]
  2. MORPHINE SULFATE CONTIN [Concomitant]
     Indication: PAIN
     Route: 048
     Dates: start: 20040101
  3. PREDNISONE [Concomitant]
     Indication: RHEUMATOID ARTHRITIS
     Route: 048
     Dates: start: 19780101
  4. GABAPENTIN [Concomitant]
     Indication: TREMOR
     Route: 048
     Dates: start: 20040101
  5. INSULIN [Concomitant]
     Indication: DIABETES MELLITUS
     Route: 058
     Dates: start: 20040101
  6. COMBIVENT [Concomitant]
     Indication: WHEEZING
     Route: 055
     Dates: start: 20040101
  7. TRANXENE [Concomitant]
     Indication: PANIC ATTACK
     Route: 048
  8. ZOLPIDEM TARTRATE [Concomitant]
     Indication: INSOMNIA
     Route: 048
  9. ESOMEPRAZOLE MAGNESIUM [Concomitant]
     Indication: GASTROOESOPHAGEAL REFLUX DISEASE
     Route: 048
     Dates: start: 20070501
  10. OMEPRAZOLE [Concomitant]
     Indication: GASTROOESOPHAGEAL REFLUX DISEASE
     Route: 048
     Dates: start: 20070501
  11. NORTRIPTYLINE HCL [Concomitant]
     Indication: DEPRESSION
     Route: 048

REACTIONS (2)
  - HYPERSENSITIVITY [None]
  - PNEUMONIA [None]
